FAERS Safety Report 6655548-6 (Version None)
Quarter: 2010Q1

REPORT INFORMATION
  Report Type: 
  Country: None (occurrence: None)
  Receive Date: 20100329
  Receipt Date: 20100318
  Transmission Date: 20100710
  Serious: Yes (Other)
  Sender: FDA-Public Use
  Company Number: AU-PFIZER INC-2010024879

PATIENT
  Age: 75 Year
  Sex: Male

DRUGS (2)
  1. DILANTIN [Suspect]
     Dosage: UNK
  2. DILANTIN [Suspect]
     Dosage: UNK

REACTIONS (2)
  - DRUG LEVEL INCREASED [None]
  - WRONG TECHNIQUE IN DRUG USAGE PROCESS [None]
